FAERS Safety Report 9422953 (Version 1)
Quarter: 2013Q3

REPORT INFORMATION
  Report Type: Spontaneous
  Country: BE (occurrence: BE)
  Receive Date: 20130726
  Receipt Date: 20130726
  Transmission Date: 20140515
  Serious: Yes (Hospitalization)
  Sender: FDA-Public Use
  Company Number: BE-ELI_LILLY_AND_COMPANY-BE201307007212

PATIENT
  Age: 86 Year
  Sex: Female

DRUGS (3)
  1. EFIENT [Suspect]
     Indication: CORONARY ARTERY STENOSIS
     Dosage: 5 MG, QD
     Route: 048
     Dates: start: 20130628
  2. EFIENT [Suspect]
     Dosage: 10 MG, UNKNOWN
     Route: 048
     Dates: start: 20130717
  3. ANGIOX [Concomitant]
     Dosage: UNK

REACTIONS (3)
  - Device occlusion [Unknown]
  - Electrocardiogram ST segment elevation [Unknown]
  - Drug ineffective [Unknown]
